FAERS Safety Report 9853024 (Version 1)
Quarter: 2014Q1

REPORT INFORMATION
  Report Type: Report from Study
  Country: GB (occurrence: GB)
  Receive Date: 20140129
  Receipt Date: 20140129
  Transmission Date: 20141002
  Serious: Yes (Other)
  Sender: FDA-Public Use
  Company Number: GB-ALEXION PHARMACEUTICALS INC.-A201400229

PATIENT
  Age: 24 Year
  Sex: Male

DRUGS (1)
  1. SOLIRIS [Suspect]
     Indication: PAROXYSMAL NOCTURNAL HAEMOGLOBINURIA
     Dosage: 900MG Q2W
     Dates: start: 201309

REACTIONS (7)
  - Rectal haemorrhage [Recovered/Resolved]
  - Dyspnoea [Unknown]
  - Platelet count decreased [Unknown]
  - Fatigue [Unknown]
  - Abdominal pain upper [Unknown]
  - Arthralgia [Unknown]
  - Petechiae [Unknown]
